FAERS Safety Report 7473175-8 (Version None)
Quarter: 2011Q2

REPORT INFORMATION
  Report Type: 
  Country: None (occurrence: None)
  Receive Date: 20110511
  Receipt Date: 20110509
  Transmission Date: 20111010
  Serious: Yes (Hospitalization)
  Sender: FDA-Public Use
  Company Number: A0893608A

PATIENT
  Age: 54 Year
  Sex: Male

DRUGS (1)
  1. AVANDIA [Suspect]
     Indication: TYPE 2 DIABETES MELLITUS
     Dosage: 4MG TWICE PER DAY
     Route: 048
     Dates: start: 20041218, end: 20090301

REACTIONS (8)
  - CORONARY ARTERY BYPASS [None]
  - PAIN IN EXTREMITY [None]
  - CHEST DISCOMFORT [None]
  - ERECTILE DYSFUNCTION [None]
  - MYOCARDIAL INFARCTION [None]
  - LIMB DISCOMFORT [None]
  - GAIT DISTURBANCE [None]
  - DYSPNOEA [None]
